FAERS Safety Report 7340870-0 (Version None)
Quarter: 2011Q1

REPORT INFORMATION
  Report Type: 
  Country: None (occurrence: None)
  Receive Date: 20110228
  Receipt Date: 20110214
  Transmission Date: 20110831
  Serious: Yes (Other)
  Sender: FDA-Public Use
  Company Number: 8029445

PATIENT
  Sex: Female
  Weight: 58 kg

DRUGS (8)
  1. KEPPRA [Suspect]
     Indication: EPILEPSY
     Dosage: (1000 MG, DOSE FREQ.: DAILY ORAL), (1500 MG, DOSE FREQ.: DAILY ORAL)
     Route: 048
     Dates: start: 20070827
  2. KEPPRA [Suspect]
     Indication: EPILEPSY
     Dosage: (1000 MG, DOSE FREQ.: DAILY ORAL), (1500 MG, DOSE FREQ.: DAILY ORAL)
     Route: 048
     Dates: start: 20050101, end: 20070828
  3. KEFLEX [Concomitant]
  4. FOLIC ACID [Concomitant]
  5. VITAMINS NOS [Concomitant]
  6. SINGULAIR [Concomitant]
  7. CEFEPIME [Concomitant]
  8. LEVAQUIN [Concomitant]

REACTIONS (8)
  - URINARY TRACT INFECTION PSEUDOMONAL [None]
  - DRUG EXPOSURE DURING PREGNANCY [None]
  - GRAND MAL CONVULSION [None]
  - NEPHROLITHIASIS [None]
  - DEVICE OCCLUSION [None]
  - PREGNANCY [None]
  - PYELONEPHRITIS [None]
  - MEDICAL DEVICE COMPLICATION [None]
